FAERS Safety Report 4894408-8 (Version None)
Quarter: 2006Q1

REPORT INFORMATION
  Report Type: 
  Country: None (occurrence: None)
  Receive Date: 20060127
  Receipt Date: 20050606
  Transmission Date: 20060701
  Serious: Yes (Death, Hospitalization)
  Sender: FDA-Public Use
  Company Number: GBWYE720406JUN05

PATIENT
  Sex: Female

DRUGS (9)
  1. ENBREL [Suspect]
     Indication: RHEUMATOID ARTHRITIS
     Dosage: UNKNOWN
     Route: 058
     Dates: start: 20040628
  2. THYROXIN [Concomitant]
  3. OXYBUTYNIN [Concomitant]
  4. DIHYDROCODEINE [Concomitant]
  5. NIFEDIPINE [Concomitant]
  6. FERROUS SULFATE TAB [Concomitant]
  7. LEVOCETIRIZINE [Concomitant]
  8. NABUMETONE [Concomitant]
  9. RABEPRAZOLE SODIUM [Concomitant]

REACTIONS (7)
  - ABSCESS [None]
  - ARTHRITIS BACTERIAL [None]
  - FALL [None]
  - HIP FRACTURE [None]
  - JOINT ABSCESS [None]
  - MULTI-ORGAN FAILURE [None]
  - STAPHYLOCOCCAL SEPSIS [None]
